FAERS Safety Report 5016578-3 (Version None)
Quarter: 2006Q2

REPORT INFORMATION
  Report Type: 
  Country: None (occurrence: None)
  Receive Date: 20060418
  Receipt Date: 20060221
  Transmission Date: 20061013
  Serious: Yes (Other)
  Sender: FDA-Public Use
  Company Number: 24926

PATIENT
  Age: 42 Year
  Sex: Female

DRUGS (1)
  1. AMIODARONE HCL [Suspect]
     Indication: SUPRAVENTRICULAR TACHYCARDIA
     Dosage: 1.8MG/ML/IV/
     Route: 042
     Dates: start: 20060213, end: 20060214

REACTIONS (1)
  - EXTRAVASATION [None]
